FAERS Safety Report 17392014 (Version 1)
Quarter: 2020Q1

REPORT INFORMATION
  Report Type: Other
  Country: AU (occurrence: AU)
  Receive Date: 20200207
  Receipt Date: 20200207
  Transmission Date: 20200409
  Serious: Yes (Other)
  Sender: FDA-Public Use
  Company Number: AU-GE HEALTHCARE LIFE SCIENCES-2020CSU000222

PATIENT

DRUGS (7)
  1. RESVERATROL [Concomitant]
     Active Substance: DIETARY SUPPLEMENT\RESVERATROL
  2. VITAMIN C [Concomitant]
     Active Substance: ASCORBIC ACID
  3. OMNISCAN [Suspect]
     Active Substance: GADODIAMIDE
     Indication: PUPILS UNEQUAL
  4. FISH OIL [Concomitant]
     Active Substance: FISH OIL
  5. OMNISCAN [Suspect]
     Active Substance: GADODIAMIDE
     Indication: MAGNETIC RESONANCE IMAGING BRAIN
     Dosage: UNK, SINGLE
     Route: 065
     Dates: start: 20150423, end: 20150423
  6. MAGNESIUM [Concomitant]
     Active Substance: MAGNESIUM
  7. MULTIVITAMINS [Concomitant]
     Active Substance: VITAMINS

REACTIONS (9)
  - Thirst [Not Recovered/Not Resolved]
  - Muscular weakness [Unknown]
  - Pain [Not Recovered/Not Resolved]
  - Feeling abnormal [Unknown]
  - Malaise [Not Recovered/Not Resolved]
  - Paraesthesia [Not Recovered/Not Resolved]
  - Muscle spasms [Unknown]
  - Asthenia [Not Recovered/Not Resolved]
  - Irritability [Unknown]

NARRATIVE: CASE EVENT DATE: 20150423
